FAERS Safety Report 5933096-6 (Version None)
Quarter: 2008Q4

REPORT INFORMATION
  Report Type: 
  Country: None (occurrence: None)
  Receive Date: 20081028
  Receipt Date: 20081017
  Transmission Date: 20090506
  Serious: Yes (Other)
  Sender: FDA-Public Use
  Company Number: US-JNJFOC-20081004555

PATIENT
  Sex: Male
  Weight: 76.66 kg

DRUGS (10)
  1. REMICADE [Suspect]
     Route: 042
  2. REMICADE [Suspect]
     Route: 042
  3. REMICADE [Suspect]
     Dosage: WEEK 2 AND WEEK 6
     Route: 042
  4. REMICADE [Suspect]
     Indication: PSORIATIC ARTHROPATHY
     Dosage: 2 INFUSIONS
     Route: 042
  5. ALEVE [Suspect]
     Indication: ARTHRALGIA
  6. HYDROCHLOROTHIAZIDE [Concomitant]
  7. METHOTREXATE [Concomitant]
  8. ZANTAC [Concomitant]
     Indication: PREMEDICATION
  9. SIMVASTATIN [Concomitant]
  10. ZYRTEC [Concomitant]
     Indication: PREMEDICATION

REACTIONS (6)
  - ARTHRALGIA [None]
  - CHEST PAIN [None]
  - DRUG HYPERSENSITIVITY [None]
  - HYPERHIDROSIS [None]
  - INFUSION RELATED REACTION [None]
  - PALLOR [None]
